FAERS Safety Report 9649316 (Version 1)
Quarter: 2013Q4

REPORT INFORMATION
  Report Type: Spontaneous
  Country: US (occurrence: None)
  Receive Date: 20131018
  Receipt Date: 20131018
  Transmission Date: 20140711
  Serious: No
  Sender: FDA-Public Use
  Company Number: AEGR000105

PATIENT
  Age: 60 Year
  Sex: Female
  Weight: 81.6 kg

DRUGS (8)
  1. JUXTAPID [Suspect]
     Indication: TYPE IIA HYPERLIPIDAEMIA
     Route: 048
     Dates: start: 20130722
  2. PRILOSEC ONGOING [Concomitant]
  3. METFORMIN (METFORMIN) [Concomitant]
  4. PLAVIX (CLOPIDOGREL) [Concomitant]
  5. ZOLOFT (SERTRALINE HYDROCHLORIDE) [Concomitant]
  6. VISTARIL (HYDROXYZINE EMBONATE) [Concomitant]
  7. MENEST (ESTROGENS CONJUGATED) [Concomitant]
  8. TRIBENZOR (AMLODIPINE BESILATE, HYDROCHLORPTHIAZIDE, OLMESARTAN MEDOXOMIL) [Concomitant]

REACTIONS (3)
  - Constipation [None]
  - Weight decreased [None]
  - Hypercholesterolaemia [None]
